FAERS Safety Report 20038068 (Version 1)
Quarter: 2021Q4

REPORT INFORMATION
  Report Type: Spontaneous
  Country: ES (occurrence: ES)
  Receive Date: 20211105
  Receipt Date: 20211105
  Transmission Date: 20220303
  Serious: Yes (Hospitalization, Other)
  Sender: FDA-Public Use
  Company Number: ES-VALIDUS PHARMACEUTICALS LLC-ES-VDP-2021-014499

PATIENT

DRUGS (5)
  1. FUROSEMIDE [Interacting]
     Active Substance: FUROSEMIDE
     Indication: Hepatic hydrothorax
     Dosage: 40 MILLIGRAM, 1 TAB A DAY MONDAY, WEDNESDAY AND FRIDAY. HALF TABLET TUESDAY, THURSDAY, SATURDAY AND
     Route: 048
     Dates: start: 20200212
  2. FUROSEMIDE [Interacting]
     Active Substance: FUROSEMIDE
     Dosage: 0.5 DF, QOD
     Route: 065
     Dates: start: 20210212
  3. FUROSEMIDE [Interacting]
     Active Substance: FUROSEMIDE
     Dosage: UNK
     Route: 065
  4. SPIRONOLACTONE [Interacting]
     Active Substance: SPIRONOLACTONE
     Indication: Hepatic hydrothorax
     Dosage: UNK UNK, QD
     Route: 048
     Dates: start: 20210219
  5. SPIRONOLACTONE [Interacting]
     Active Substance: SPIRONOLACTONE
     Dosage: UNK
     Route: 065

REACTIONS (2)
  - Acute kidney injury [Recovered/Resolved]
  - Drug interaction [Unknown]
